FAERS Safety Report 14473443 (Version 1)
Quarter: 2018Q1

REPORT INFORMATION
  Report Type: Spontaneous
  Country: US (occurrence: US)
  Receive Date: 20180201
  Receipt Date: 20180201
  Transmission Date: 20180509
  Serious: Yes (Other)
  Sender: FDA-Public Use
  Company Number: US-TEVA-816210USA

PATIENT
  Sex: Female

DRUGS (1)
  1. HYDROCHLOROTHIAZIDE. [Suspect]
     Active Substance: HYDROCHLOROTHIAZIDE
     Route: 065

REACTIONS (1)
  - Systemic lupus erythematosus [Unknown]
